FAERS Safety Report 24283206 (Version 1)
Quarter: 2024Q3

REPORT INFORMATION
  Report Type: Spontaneous
  Country: DE (occurrence: DE)
  Receive Date: 20240904
  Receipt Date: 20240904
  Transmission Date: 20241017
  Serious: Yes (Hospitalization)
  Sender: NOVO NORDISK
  Company Number: DE-EMA-DD-20240715-7482677-084326

PATIENT
  Age: 63 Year
  Sex: Male
  Weight: 65 kg

DRUGS (28)
  1. ACTRAPID [Suspect]
     Active Substance: INSULIN HUMAN
     Indication: Diabetes mellitus
     Dosage: 6 - 52 IU/DAY
     Dates: start: 19981107, end: 19981107
  2. MCP [Suspect]
     Active Substance: METOCLOPRAMIDE HYDROCHLORIDE
     Indication: Illness
     Dosage: UNK
     Dates: start: 19981106
  3. ACETYLCYSTEINE [Suspect]
     Active Substance: ACETYLCYSTEINE
     Indication: Cough
     Dosage: 20 DROPS/DAY
     Dates: start: 19981109
  4. FUROSEMIDE [Suspect]
     Active Substance: FUROSEMIDE
     Indication: Product used for unknown indication
     Dosage: 2 TIMES 1 AMP
     Dates: start: 19981107
  5. URAPIDIL [Suspect]
     Active Substance: URAPIDIL
     Indication: Angina pectoris
     Dosage: UNK
     Dates: start: 19981107, end: 19981107
  6. FUROSEMIDE [Suspect]
     Active Substance: FUROSEMIDE
     Indication: Coronary artery insufficiency
     Dosage: UNK
  7. DIAZEPAM [Suspect]
     Active Substance: DIAZEPAM
     Indication: Restlessness
     Dosage: UNK
     Dates: start: 19981107, end: 19981107
  8. NITROGLYCERIN [Suspect]
     Active Substance: NITROGLYCERIN
     Indication: Angina pectoris
     Dosage: UNK
     Dates: start: 19981109
  9. ACETYLCYSTEINE [Suspect]
     Active Substance: ACETYLCYSTEINE
     Indication: Mucosal inflammation
     Dosage: UNSPECIFIED
     Dates: start: 19981108
  10. LASIX [Suspect]
     Active Substance: FUROSEMIDE
     Indication: Coronary artery insufficiency
     Dosage: UNK
     Dates: start: 19981107, end: 19981107
  11. AMOXICILLIN [Suspect]
     Active Substance: AMOXICILLIN
     Indication: Bronchitis
     Dosage: DOSAGE FREQUENCY: 1 OR 2 TAB/DAY; SINGLE DOSIS 750
     Dates: start: 19981107
  12. ALLOPURINOL [Suspect]
     Active Substance: ALLOPURINOL
     Indication: Hyperuricaemia
     Dosage: DOSAGE FREQUENCY: 1 - 0.5 TAB/DAY
     Dates: start: 19980925, end: 19981106
  13. MORPHINE [Suspect]
     Active Substance: MORPHINE
     Indication: Pain
     Dosage: UNK
     Dates: start: 19981107, end: 19981107
  14. ASPIRIN LYSINE [Suspect]
     Active Substance: ASPIRIN LYSINE
     Indication: Angina pectoris
     Dosage: UNK
     Dates: start: 19981107, end: 19981107
  15. FLUVASTATIN SODIUM [Suspect]
     Active Substance: FLUVASTATIN SODIUM
     Indication: Hypercholesterolaemia
     Dosage: UNK
     Dates: start: 19981023, end: 19981106
  16. FUROSEMIDE [Suspect]
     Active Substance: FUROSEMIDE
     Indication: Oedema
     Dosage: UNK
     Dates: end: 19981106
  17. NITROGLYCERIN [Suspect]
     Active Substance: NITROGLYCERIN
     Indication: Angina pectoris
     Dosage: UNK
     Dates: start: 19981107, end: 19981108
  18. MOLSIDOMINE [Concomitant]
     Active Substance: MOLSIDOMINE
     Indication: Coronary artery disease
     Dosage: UNK
     Dates: end: 19981106
  19. HEPARIN SODIUM [Suspect]
     Active Substance: HEPARIN SODIUM
     Indication: Thrombosis
     Dosage: UNK
     Dates: start: 19981107, end: 19981108
  20. INSULIN NOS [Concomitant]
     Active Substance: INSULIN NOS
     Indication: Diabetes mellitus
     Dosage: 70 IU, QD
  21. CARVEDILOL [Concomitant]
     Active Substance: CARVEDILOL
     Indication: Hypertension
     Dosage: UNK
  22. ISMN BASICS [Concomitant]
     Indication: Coronary artery disease
     Dosage: UNK
     Dates: end: 19981106
  23. ACETAMINOPHEN [Suspect]
     Active Substance: ACETAMINOPHEN
     Indication: Pyrexia
     Dosage: UNK
     Dates: start: 19981108, end: 19981109
  24. ISOSORBIDE DINITRATE [Suspect]
     Active Substance: ISOSORBIDE DINITRATE
     Indication: Coronary artery disease
     Dosage: UNK
     Dates: start: 19981108
  25. HEPARIN SODIUM [Suspect]
     Active Substance: HEPARIN SODIUM
     Indication: Thrombosis
     Dosage: UNK
     Dates: start: 19981107, end: 19981107
  26. NOVALGIN (METAMIZOLE SODIUM) [Suspect]
     Active Substance: METAMIZOLE SODIUM
     Indication: Pain
     Dosage: 20 DROPS/DAY
     Dates: start: 19981107, end: 19981107
  27. MOLSIDOMINE [Suspect]
     Active Substance: MOLSIDOMINE
     Indication: Coronary artery disease
     Dosage: UNK
     Dates: start: 19981108
  28. MCP [Suspect]
     Active Substance: METOCLOPRAMIDE HYDROCHLORIDE
     Indication: Illness
     Dosage: AMP 1
     Dates: start: 19981107, end: 19981107

REACTIONS (12)
  - Skin disorder [Unknown]
  - Pruritus [Unknown]
  - Pruritus [Unknown]
  - Leukocytosis [Unknown]
  - Ocular hyperaemia [Unknown]
  - Stevens-Johnson syndrome [Recovered/Resolved]
  - Erythema multiforme [Recovered/Resolved]
  - Rash [Unknown]
  - Oral mucosal eruption [Unknown]
  - Pyrexia [Unknown]
  - Blood urea increased [Unknown]
  - Blood creatinine increased [Unknown]

NARRATIVE: CASE EVENT DATE: 19981108
